FAERS Safety Report 9983844 (Version 5)
Quarter: 2015Q2

REPORT INFORMATION
  Report Type: Spontaneous
  Country: US (occurrence: US)
  Receive Date: 20140307
  Receipt Date: 20150618
  Transmission Date: 20150821
  Serious: Yes (Other)
  Sender: FDA-Public Use
  Company Number: US-009507513-1403USA000612

PATIENT
  Sex: Female
  Weight: 65.9 kg

DRUGS (5)
  1. FOSAMAX [Suspect]
     Active Substance: ALENDRONATE SODIUM
     Indication: OSTEOPOROSIS
     Dosage: UNK
     Route: 048
     Dates: start: 1998, end: 2008
  2. FOSAMAX [Suspect]
     Active Substance: ALENDRONATE SODIUM
     Dosage: 70 MG, UNK
     Route: 048
     Dates: start: 20100813, end: 20110327
  3. FOSAMAX [Suspect]
     Active Substance: ALENDRONATE SODIUM
     Dosage: 70 MG, QW
     Route: 048
     Dates: start: 20071003, end: 20080730
  4. ALENDRONATE SODIUM. [Suspect]
     Active Substance: ALENDRONATE SODIUM
     Dosage: 70 MG, UNK
     Dates: start: 20110603, end: 20120319
  5. ALENDRONATE SODIUM. [Suspect]
     Active Substance: ALENDRONATE SODIUM
     Indication: OSTEOPOROSIS
     Dosage: 70 MG, QW
     Route: 048
     Dates: start: 20081129, end: 20100511

REACTIONS (12)
  - Fracture [Unknown]
  - Dental implantation [Unknown]
  - Tooth extraction [Unknown]
  - Dental prosthesis placement [Unknown]
  - Fracture delayed union [Unknown]
  - Blood cholesterol increased [Unknown]
  - Bone density abnormal [Unknown]
  - Femur fracture [Unknown]
  - Sensory loss [Unknown]
  - Cerebrovascular accident [Unknown]
  - Bone formation decreased [Unknown]
  - Periodontal operation [Unknown]

NARRATIVE: CASE EVENT DATE: 2002
